FAERS Safety Report 23135262 (Version 3)
Quarter: 2023Q4

REPORT INFORMATION
  Report Type: Report from Study
  Country: DE (occurrence: DE)
  Receive Date: 20231101
  Receipt Date: 20231122
  Transmission Date: 20240110
  Serious: Yes (Hospitalization)
  Sender: FDA-Public Use
  Company Number: DE-Eisai-EC-2023-151623

PATIENT
  Age: 58 Year
  Sex: Male
  Weight: 83 kg

DRUGS (7)
  1. LENVATINIB [Suspect]
     Active Substance: LENVATINIB
     Indication: Hepatocellular carcinoma
     Route: 048
     Dates: start: 20221020, end: 20221130
  2. LENVATINIB [Suspect]
     Active Substance: LENVATINIB
     Route: 048
     Dates: start: 20221208
  3. VIBOSTOLIMAB [Suspect]
     Active Substance: VIBOSTOLIMAB
     Indication: Hepatocellular carcinoma
     Dosage: VIBOSTOLIMAB 200MG + PEMBROLIZUMAB 200MG
     Route: 041
     Dates: start: 20221020, end: 20221110
  4. PEMBROLIZUMAB [Suspect]
     Active Substance: PEMBROLIZUMAB
     Dosage: VIBOSTOLIMAB 200MG + PEMBROLIZUMAB 200MG
     Route: 041
     Dates: start: 20221208
  5. METAMIZOLE [Concomitant]
     Active Substance: METAMIZOLE
     Dates: start: 20220916
  6. LOPERAMIDE [Concomitant]
     Active Substance: LOPERAMIDE
     Dates: start: 20221023
  7. ONDANSETRON [Concomitant]
     Active Substance: ONDANSETRON
     Dates: start: 20221019

REACTIONS (1)
  - Ecthyma [Not Recovered/Not Resolved]

NARRATIVE: CASE EVENT DATE: 20221126
